FAERS Safety Report 23746787 (Version 1)
Quarter: 2024Q2

REPORT INFORMATION
  Report Type: Spontaneous
  Country: CA (occurrence: CA)
  Receive Date: 20240416
  Receipt Date: 20240416
  Transmission Date: 20240716
  Serious: Yes (Other)
  Sender: FDA-Public Use
  Company Number: CA-AMGEN-CANSP2024072193

PATIENT
  Age: 33 Year
  Sex: Female
  Weight: 95 kg

DRUGS (1)
  1. AVSOLA [Suspect]
     Active Substance: INFLIXIMAB-AXXQ
     Indication: Rheumatoid arthritis
     Dosage: 300 MILLIGRAM, Q8WK
     Route: 065
     Dates: start: 20240217

REACTIONS (2)
  - Rheumatoid arthritis [Unknown]
  - Drug ineffective [Unknown]

NARRATIVE: CASE EVENT DATE: 20240101
